FAERS Safety Report 23259371 (Version 1)
Quarter: 2023Q4

REPORT INFORMATION
  Report Type: Spontaneous
  Country: US (occurrence: US)
  Receive Date: 20231204
  Receipt Date: 20231204
  Transmission Date: 20240110
  Serious: No
  Sender: FDA-Public Use
  Company Number: US-BRISTOL-MYERS SQUIBB COMPANY-2023-173316

PATIENT
  Age: 67 Year
  Sex: Female
  Weight: 95.71 kg

DRUGS (1)
  1. THALOMID [Suspect]
     Active Substance: THALIDOMIDE
     Indication: Subacute cutaneous lupus erythematosus
     Route: 048

REACTIONS (4)
  - Stomatitis [Unknown]
  - Diarrhoea [Unknown]
  - Dry mouth [Unknown]
  - Off label use [Unknown]
